FAERS Safety Report 18161477 (Version 1)
Quarter: 2020Q3

REPORT INFORMATION
  Report Type: Spontaneous
  Country: CA (occurrence: CA)
  Receive Date: 20200817
  Receipt Date: 20200817
  Transmission Date: 20201103
  Serious: Yes (Other)
  Sender: FDA-Public Use
  Company Number: CA-BAXTER-2020BAX016198

PATIENT
  Age: 41 Year
  Sex: Male

DRUGS (5)
  1. METRONIDAZOLE INJECTION, USP [Suspect]
     Active Substance: METRONIDAZOLE
     Indication: ANAL ULCER
     Route: 065
  2. METRONIDAZOLE INJECTION, USP [Suspect]
     Active Substance: METRONIDAZOLE
     Indication: ANAL INFECTION
  3. USTEKINUMAB [Suspect]
     Active Substance: USTEKINUMAB
     Indication: CROHN^S DISEASE
     Route: 065
  4. CIPROFLOXACIN. [Concomitant]
     Active Substance: CIPROFLOXACIN
     Indication: ANAL INFECTION
  5. CIPROFLOXACIN. [Concomitant]
     Active Substance: CIPROFLOXACIN
     Indication: ANAL ULCER
     Route: 065

REACTIONS (6)
  - Parkinsonism [Recovered/Resolved]
  - Peripheral sensory neuropathy [Recovered/Resolved]
  - Neurotoxicity [Recovered/Resolved with Sequelae]
  - Ataxia [Recovered/Resolved]
  - Central nervous system lesion [Not Recovered/Not Resolved]
  - Toxic encephalopathy [Recovered/Resolved with Sequelae]
